FAERS Safety Report 9938166 (Version 3)
Quarter: 2014Q2

REPORT INFORMATION
  Report Type: Report from Study
  Country: NL (occurrence: NL)
  Receive Date: 20140303
  Receipt Date: 20140512
  Transmission Date: 20141212
  Serious: Yes (Death, Other)
  Sender: FDA-Public Use
  Company Number: NL-CELGENEUS-114-21880-14022458

PATIENT
  Age: 68 Year
  Sex: Female

DRUGS (3)
  1. REVLIMID [Suspect]
     Indication: MYELODYSPLASTIC SYNDROME
     Route: 048
     Dates: start: 20130111
  2. REVLIMID [Suspect]
     Route: 048
     Dates: start: 20130502, end: 20130521
  3. DEFERASIROX [Concomitant]
     Indication: IRON OVERLOAD
     Route: 048
     Dates: start: 201304

REACTIONS (1)
  - Lung squamous cell carcinoma metastatic [Fatal]
